FAERS Safety Report 8333321-0 (Version None)
Quarter: 2012Q1

REPORT INFORMATION
  Report Type: 
  Country: None (occurrence: None)
  Receive Date: 20120327
  Receipt Date: 20110418
  Transmission Date: 20120608
  Serious: Yes (Other)
  Sender: FDA-Public Use
  Company Number: PHHY2011US25659

PATIENT
  Age: 79 Year
  Sex: Male

DRUGS (2)
  1. GLEEVEC [Suspect]
     Indication: CHRONIC MYELOID LEUKAEMIA
     Dosage: 400 MG, DAILY, ORAL, 200 MG, DAILY, ORAL
     Route: 048
     Dates: start: 20050601
  2. IRON (IRON) [Concomitant]

REACTIONS (8)
  - ANAEMIA [None]
  - OCCULT BLOOD POSITIVE [None]
  - ASTHENIA [None]
  - MUSCULOSKELETAL DISCOMFORT [None]
  - CARDIAC MURMUR [None]
  - HAEMOGLOBIN DECREASED [None]
  - FULL BLOOD COUNT ABNORMAL [None]
  - FATIGUE [None]
